FAERS Safety Report 9361017 (Version 1)
Quarter: 2013Q2

REPORT INFORMATION
  Report Type: Spontaneous
  Country: US (occurrence: None)
  Receive Date: 20130620
  Receipt Date: 20130620
  Transmission Date: 20140414
  Serious: Yes (Hospitalization)
  Sender: FDA-Public Use
  Company Number: None

PATIENT
  Age: 61 Year
  Sex: Female
  Weight: 83.46 kg

DRUGS (9)
  1. KOMBIGLYZE XR [Suspect]
     Indication: TYPE 2 DIABETES MELLITUS
     Route: 048
     Dates: start: 20120531, end: 20130512
  2. TIZATIDINE [Concomitant]
  3. FLUOXETINE [Concomitant]
  4. PRAVASTATIN [Concomitant]
  5. PRANDIN [Concomitant]
  6. ASPIRIN [Concomitant]
  7. ADVAIR [Concomitant]
  8. RELPAX [Concomitant]
  9. HUMULIN N [Concomitant]

REACTIONS (1)
  - Pancreatitis [None]
